FAERS Safety Report 24846289 (Version 3)
Quarter: 2025Q1

REPORT INFORMATION
  Report Type: Spontaneous
  Country: AU (occurrence: AU)
  Receive Date: 20250115
  Receipt Date: 20250227
  Transmission Date: 20250408
  Serious: Yes (Other)
  Sender: ORGANON
  Company Number: AU-ORGANON-O2501AUS001004

PATIENT
  Age: 85 Year
  Sex: Male

DRUGS (2)
  1. SINEMET [Suspect]
     Active Substance: CARBIDOPA\LEVODOPA
     Indication: Parkinson^s disease
     Route: 048
     Dates: start: 2023
  2. SINEMET [Suspect]
     Active Substance: CARBIDOPA\LEVODOPA
     Route: 048

REACTIONS (4)
  - Renal haemorrhage [Unknown]
  - Hallucination [Recovering/Resolving]
  - Dyspnoea at rest [Recovering/Resolving]
  - Blood urine present [Recovering/Resolving]
